FAERS Safety Report 5136729-X (Version None)
Quarter: 2006Q4

REPORT INFORMATION
  Report Type: 
  Country: None (occurrence: None)
  Receive Date: 20061023
  Receipt Date: 20061005
  Transmission Date: 20070319
  Serious: Yes (Life-Threatening, Hospitalization)
  Sender: FDA-Public Use
  Company Number: DSA_28795_2006

PATIENT
  Age: 46 Year
  Sex: Male

DRUGS (2)
  1. TAVOR [Suspect]
     Dosage: 40 MG ONCE PO
     Route: 048
     Dates: start: 20061005, end: 20061005
  2. ALCOHOL [Suspect]
     Dates: start: 20061005, end: 20061005

REACTIONS (7)
  - ALCOHOL USE [None]
  - BOWEL SOUNDS ABNORMAL [None]
  - COMA [None]
  - HYPOTENSION [None]
  - OVERDOSE [None]
  - RESPIRATORY DEPRESSION [None]
  - SUICIDE ATTEMPT [None]
